FAERS Safety Report 11103712 (Version 1)
Quarter: 2015Q2

REPORT INFORMATION
  Report Type: Spontaneous
  Country: US (occurrence: US)
  Receive Date: 20150511
  Receipt Date: 20150511
  Transmission Date: 20150821
  Serious: No
  Sender: FDA-Public Use
  Company Number: US-PFIZER INC-2015152447

PATIENT
  Age: 75 Year
  Sex: Female

DRUGS (6)
  1. DILANTIN [Suspect]
     Active Substance: PHENYTOIN
     Dosage: UNK
  2. CIPRO [Suspect]
     Active Substance: CIPROFLOXACIN HYDROCHLORIDE
     Dosage: UNK
  3. PHENAZINE [Suspect]
     Active Substance: PERPHENAZINE
     Dosage: UNK
  4. SUMYCIN [Suspect]
     Active Substance: TETRACYCLINE
     Dosage: UNK
  5. FIORINAL WITH CODEINE [Suspect]
     Active Substance: ASPIRIN\BUTALBITAL\CAFFEINE\CODEINE PHOSPHATE
     Dosage: UNK
  6. OMNICEF [Suspect]
     Active Substance: CEFDINIR
     Dosage: UNK

REACTIONS (1)
  - Drug hypersensitivity [Unknown]
